FAERS Safety Report 19933204 (Version 1)
Quarter: 2021Q4

REPORT INFORMATION
  Report Type: Report from Study
  Country: CN (occurrence: CN)
  Receive Date: 20211008
  Receipt Date: 20211008
  Transmission Date: 20220304
  Serious: Yes (Other)
  Sender: FDA-Public Use
  Company Number: CN-PFIZER INC-202101276052

PATIENT
  Age: 53 Year
  Sex: Male
  Weight: 63 kg

DRUGS (3)
  1. LINEZOLID [Suspect]
     Active Substance: LINEZOLID
     Indication: Pulmonary tuberculosis
     Dosage: UNK
  2. DELAMANID [Suspect]
     Active Substance: DELAMANID
     Indication: Pulmonary tuberculosis
     Dosage: 100 MG, BID
     Route: 048
     Dates: start: 20210319
  3. PROTIONAMIDE [Suspect]
     Active Substance: PROTIONAMIDE
     Indication: Pulmonary tuberculosis
     Dosage: UNK

REACTIONS (2)
  - Blood disorder [Recovered/Resolved]
  - Hepatotoxicity [Recovering/Resolving]

NARRATIVE: CASE EVENT DATE: 20210618
